FAERS Safety Report 11364076 (Version 1)
Quarter: 2015Q3

REPORT INFORMATION
  Report Type: Spontaneous
  Country: US (occurrence: None)
  Receive Date: 20150810
  Receipt Date: 20150810
  Transmission Date: 20151125
  Serious: No
  Sender: FDA-Public Use
  Company Number: None

PATIENT
  Age: 78 Year
  Sex: Female
  Weight: 61.24 kg

DRUGS (9)
  1. NEBULIZER WITH ALUTEROL AND IPRATROPIUM UPDRAFT [Concomitant]
  2. VITAMIN D [Concomitant]
     Active Substance: CHOLECALCIFEROL
  3. HYDROCHLOROTHIAZIDE. [Concomitant]
     Active Substance: HYDROCHLOROTHIAZIDE
  4. IBUPROFEN. [Concomitant]
     Active Substance: IBUPROFEN
  5. LOSARTAN. [Concomitant]
     Active Substance: LOSARTAN
  6. PREMARIN [Concomitant]
     Active Substance: ESTROGENS, CONJUGATED
  7. CITRACEL CALCIUM [Concomitant]
  8. CENTRUM MULTIVITAMIN [Concomitant]
  9. QVAR [Suspect]
     Active Substance: BECLOMETHASONE DIPROPIONATE
     Indication: CHRONIC OBSTRUCTIVE PULMONARY DISEASE
     Route: 055
     Dates: start: 20150630, end: 20150706

REACTIONS (2)
  - Oropharyngeal pain [None]
  - Candida infection [None]

NARRATIVE: CASE EVENT DATE: 20150630
